FAERS Safety Report 15247237 (Version 1)
Quarter: 2018Q3

REPORT INFORMATION
  Report Type: Spontaneous
  Country: US (occurrence: US)
  Receive Date: 20180807
  Receipt Date: 20180807
  Transmission Date: 20181010
  Serious: Yes (Death, Hospitalization, Other)
  Sender: FDA-Public Use
  Company Number: US-BION-004309

PATIENT
  Age: 15 Year
  Sex: Female
  Weight: 41 kg

DRUGS (1)
  1. LIDOCAINE HYDROCHLORIDE. [Suspect]
     Active Substance: LIDOCAINE HYDROCHLORIDE
     Dosage: 2%, 100ML BOTTLE,
     Route: 048

REACTIONS (4)
  - Brain death [Fatal]
  - Cardiac arrest [Unknown]
  - Seizure [Unknown]
  - Intentional overdose [Unknown]
